FAERS Safety Report 6786984-5 (Version None)
Quarter: 2010Q2

REPORT INFORMATION
  Report Type: 
  Country: None (occurrence: None)
  Receive Date: 20100621
  Receipt Date: 20100610
  Transmission Date: 20101027
  Serious: Yes (Other)
  Sender: FDA-Public Use
  Company Number: AXC-2010-000166

PATIENT
  Age: 54 Year
  Sex: Female

DRUGS (1)
  1. DICYCLOMINE [Suspect]
     Indication: DRUG USE FOR UNKNOWN INDICATION
     Dosage: 20 MG, TID

REACTIONS (3)
  - ACCIDENTAL OVERDOSE [None]
  - DIZZINESS [None]
  - DRY MOUTH [None]
